FAERS Safety Report 8104265-4 (Version None)
Quarter: 2012Q1

REPORT INFORMATION
  Report Type: 
  Country: None (occurrence: None)
  Receive Date: 20120130
  Receipt Date: 20120116
  Transmission Date: 20120608
  Serious: Yes (Hospitalization)
  Sender: FDA-Public Use
  Company Number: 1000027372

PATIENT
  Age: 88 Year
  Sex: Female

DRUGS (5)
  1. MEMANTINE HCL [Suspect]
     Indication: DEMENTIA
     Dosage: 10 MG (10 MG, 1 IN 1 D), ORAL
     Route: 048
     Dates: start: 20110915, end: 20110928
  2. RISPERDAL [Suspect]
     Dosage: 1 MG (0.5 MG, 2 IN 1 D), ORAL
     Route: 048
     Dates: start: 20110915, end: 20110928
  3. TRAVATAN [Concomitant]
  4. ZOLPIDEM [Concomitant]
  5. VEINAMITOL (TROXERUTIN) [Concomitant]

REACTIONS (6)
  - DIARRHOEA [None]
  - PYREXIA [None]
  - PANCREATITIS ACUTE [None]
  - HYPOTENSION [None]
  - PANCREATIC NECROSIS [None]
  - GASTROINTESTINAL SOUNDS ABNORMAL [None]
